FAERS Safety Report 10644976 (Version 5)
Quarter: 2015Q3

REPORT INFORMATION
  Report Type: Spontaneous
  Country: JP (occurrence: JP)
  Receive Date: 20141211
  Receipt Date: 20150709
  Transmission Date: 20151125
  Serious: Yes (Other)
  Sender: FDA-Public Use
  Company Number: JP-ASTRAZENECA-2014SE47222

PATIENT
  Age: 25542 Day
  Sex: Male
  Weight: 66 kg

DRUGS (4)
  1. SEROQUEL [Suspect]
     Active Substance: QUETIAPINE FUMARATE
     Indication: SCHIZOPHRENIA
     Route: 048
     Dates: start: 20070410, end: 20090118
  2. BENZALIN [Concomitant]
     Active Substance: NITRAZEPAM
     Route: 048
     Dates: start: 20070410, end: 20090628
  3. PURSENNID [Concomitant]
     Active Substance: SENNOSIDES A AND B
     Route: 048
     Dates: start: 20070410, end: 20080727
  4. PROPITAN [Concomitant]
     Route: 048
     Dates: start: 20090119, end: 20120708

REACTIONS (3)
  - Hypertension [Recovered/Resolved]
  - Dyslipidaemia [Recovered/Resolved]
  - Diabetes mellitus [Recovering/Resolving]

NARRATIVE: CASE EVENT DATE: 20080616
